FAERS Safety Report 9334423 (Version 2)
Quarter: 2014Q2

REPORT INFORMATION
  Report Type: Spontaneous
  Country: US (occurrence: US)
  Receive Date: 20130606
  Receipt Date: 20140519
  Transmission Date: 20141212
  Serious: No
  Sender: FDA-Public Use
  Company Number: US-AMGEN-USASP2013006549

PATIENT
  Age: 56 Year
  Sex: Female
  Weight: 47.62 kg

DRUGS (6)
  1. PROLIA [Suspect]
     Indication: OSTEOPOROSIS POSTMENOPAUSAL
     Dosage: UNK
     Route: 065
     Dates: start: 20130123
  2. LEVOTHYROXINE [Concomitant]
  3. CENTRUM                            /02217401/ [Concomitant]
  4. MAGENSIUM VITAFIT [Concomitant]
  5. VITAMIN C                          /00008001/ [Concomitant]
  6. CALCIUM WITH VITAMIN D             /00944201/ [Concomitant]

REACTIONS (13)
  - Headache [Unknown]
  - Oropharyngeal pain [Not Recovered/Not Resolved]
  - Pain [Unknown]
  - Cough [Not Recovered/Not Resolved]
  - Heart rate increased [Unknown]
  - Mobility decreased [Recovered/Resolved]
  - Feeling abnormal [Unknown]
  - Bone disorder [Unknown]
  - Back pain [Not Recovered/Not Resolved]
  - Insomnia [Unknown]
  - Arthralgia [Unknown]
  - Musculoskeletal pain [Recovered/Resolved]
  - Pain in extremity [Recovered/Resolved]
